FAERS Safety Report 12166715 (Version 2)
Quarter: 2016Q4

REPORT INFORMATION
  Report Type: Spontaneous
  Country: CA (occurrence: CA)
  Receive Date: 20160310
  Receipt Date: 20161121
  Transmission Date: 20170207
  Serious: Yes (Hospitalization, Other)
  Sender: FDA-Public Use
  Company Number: CA-ROCHE-1459906

PATIENT
  Age: 77 Year
  Sex: Female

DRUGS (5)
  1. XOLAIR [Suspect]
     Active Substance: OMALIZUMAB
     Indication: ASTHMA
     Dosage: 300 MG, EVERY 4 WEEKS
     Route: 058
     Dates: start: 20100413
  2. ALVESCO [Concomitant]
     Active Substance: CICLESONIDE
  3. XOLAIR [Suspect]
     Active Substance: OMALIZUMAB
     Dosage: UNK
     Route: 058
     Dates: start: 20161020
  4. PREDNISONE. [Concomitant]
     Active Substance: PREDNISONE
  5. SEREVENT DISKUS [Concomitant]
     Active Substance: SALMETEROL XINAFOATE

REACTIONS (6)
  - Nasopharyngitis [Unknown]
  - Fall [Unknown]
  - Malaise [Unknown]
  - Hip fracture [Recovering/Resolving]
  - Wrist fracture [Unknown]
  - Abdominal pain upper [Unknown]

NARRATIVE: CASE EVENT DATE: 2014
